FAERS Safety Report 7944477-3 (Version None)
Quarter: 2011Q4

REPORT INFORMATION
  Report Type: 
  Country: None (occurrence: None)
  Receive Date: 20111122
  Receipt Date: 20110705
  Transmission Date: 20120403
  Serious: No
  Sender: FDA-Public Use
  Company Number: PHHY2011US60048

PATIENT
  Age: 51 Year
  Sex: Female

DRUGS (1)
  1. GILENYA [Suspect]
     Indication: MULTIPLE SCLEROSIS
     Dosage: 0.5 MG, QD, ORAL
     Route: 048
     Dates: start: 20110623

REACTIONS (5)
  - MICTURITION URGENCY [None]
  - SOMNOLENCE [None]
  - POLLAKIURIA [None]
  - URETHRAL SPASM [None]
  - URINE ABNORMALITY [None]
